FAERS Safety Report 7710058 (Version 4)
Quarter: 2012Q4

REPORT INFORMATION
  Report Type: 
  Country: US (occurrence: US)
  Receive Date: 20101214
  Receipt Date: 20121203
  Transmission Date: 20130627
  Serious: No
  Sender: FDA-Public Use
  Company Number: US-ASTRAZENECA-2010SE46007

PATIENT
  Age: 58 Year
  Sex: Female
  Weight: 102.1 kg

DRUGS (17)
  1. NEXIUM [Suspect]
     Route: 048
  2. SEROQUEL [Suspect]
     Indication: DEPRESSION
     Route: 048
     Dates: start: 201006
  3. SEROQUEL [Suspect]
     Indication: ANXIETY
     Route: 048
     Dates: start: 201006
  4. SEROQUEL [Suspect]
     Indication: DEPRESSION
     Route: 048
     Dates: start: 200905, end: 201105
  5. SEROQUEL [Suspect]
     Indication: ANXIETY
     Route: 048
     Dates: start: 200905, end: 201105
  6. SEROQUEL [Suspect]
     Indication: DEPRESSION
     Route: 048
  7. SEROQUEL [Suspect]
     Indication: ANXIETY
     Route: 048
  8. CRESTOR [Suspect]
     Indication: HYPERCHOLESTEROLAEMIA
     Route: 048
     Dates: start: 201002
  9. CRESTOR [Suspect]
     Indication: HYPERCHOLESTEROLAEMIA
     Route: 048
     Dates: end: 201005
  10. CRESTOR [Suspect]
     Indication: HYPERCHOLESTEROLAEMIA
     Route: 048
     Dates: start: 201005
  11. CRESTOR [Suspect]
     Indication: HYPERCHOLESTEROLAEMIA
     Route: 048
     Dates: start: 201009
  12. TRILIPIX [Concomitant]
     Indication: BLOOD TRIGLYCERIDES INCREASED
  13. HYDROCODONE [Concomitant]
     Indication: PAIN
     Dosage: TWICE A DAY
  14. FLEXERIL [Concomitant]
  15. NAPROXEN [Concomitant]
     Dosage: TWICE A DAY
  16. ALPRAZOLAM [Concomitant]
     Indication: ANXIETY
  17. EFFEXOR [Concomitant]
     Indication: DEPRESSION

REACTIONS (5)
  - Anxiety [Unknown]
  - Arthritis [Unknown]
  - Hypercholesterolaemia [Unknown]
  - Weight increased [Unknown]
  - Drug dose omission [Unknown]
